FAERS Safety Report 17361149 (Version 1)
Quarter: 2020Q1

REPORT INFORMATION
  Report Type: Spontaneous
  Country: US (occurrence: US)
  Receive Date: 20200117
  Receipt Date: 20200117
  Transmission Date: 20200409
  Serious: Yes (Hospitalization)
  Sender: FDA-Public Use
  Company Number: None

PATIENT
  Age: 83 Year
  Sex: Male
  Weight: 81.9 kg

DRUGS (8)
  1. REVLIMID [Suspect]
     Active Substance: LENALIDOMIDE
     Indication: PLASMA CELL MYELOMA
     Dosage: ?          QUANTITY:1 CAPSULE;OTHER FREQUENCY:DAILY DAYS 1-21, ;?
     Route: 048
     Dates: start: 20191018, end: 20200101
  2. ACYCLOVIR 400 MG [Concomitant]
     Active Substance: ACYCLOVIR
  3. ASPIRIN 81 MG [Concomitant]
     Active Substance: ASPIRIN
  4. ADVAIR DISKUS [Concomitant]
     Active Substance: FLUTICASONE PROPIONATE\SALMETEROL XINAFOATE
  5. ZITHROMAX 250 MG [Concomitant]
  6. CARVEDILOL 3.125 MG [Concomitant]
     Active Substance: CARVEDILOL
  7. LASIX [Concomitant]
     Active Substance: FUROSEMIDE
  8. DECADRON [Concomitant]
     Active Substance: DEXAMETHASONE

REACTIONS (4)
  - Hypotension [None]
  - Therapy cessation [None]
  - Anaemia [None]
  - Dyspnoea [None]

NARRATIVE: CASE EVENT DATE: 20200102
